FAERS Safety Report 4773597-X (Version None)
Quarter: 2005Q3

REPORT INFORMATION
  Report Type: 
  Country: None (occurrence: None)
  Receive Date: 20050914
  Receipt Date: 20041028
  Transmission Date: 20060218
  Serious: Yes (Death)
  Sender: FDA-Public Use
  Company Number: 163-20785-04100784

PATIENT
  Age: 79 Year
  Sex: Female

DRUGS (1)
  1. THALOMID [Suspect]
     Indication: NEOPLASM MALIGNANT
     Dosage: 50 MG, QD, ORAL
     Route: 048
     Dates: start: 20030418, end: 20041027

REACTIONS (2)
  - DEATH [None]
  - DISEASE PROGRESSION [None]
